FAERS Safety Report 16214739 (Version 2)
Quarter: 2019Q2

REPORT INFORMATION
  Report Type: Spontaneous
  Country: HU (occurrence: HU)
  Receive Date: 20190418
  Receipt Date: 20190424
  Transmission Date: 20190711
  Serious: Yes (Death, Life-Threatening, Hospitalization)
  Sender: FDA-Public Use
  Company Number: HU-PFIZER INC-2019161256

PATIENT
  Age: 48 Year
  Sex: Female

DRUGS (1)
  1. DALACIN [Suspect]
     Active Substance: CLINDAMYCIN
     Indication: PHARYNGITIS
     Dosage: UNK

REACTIONS (4)
  - Pneumonia [Unknown]
  - Lymphadenopathy [Unknown]
  - Eosinophil count increased [Unknown]
  - Death [Fatal]

NARRATIVE: CASE EVENT DATE: 20190416
